FAERS Safety Report 9243293 (Version 1)
Quarter: 2013Q2

REPORT INFORMATION
  Report Type: Spontaneous
  Country: ES (occurrence: ES)
  Receive Date: 20130419
  Receipt Date: 20130419
  Transmission Date: 20140414
  Serious: Yes (Other)
  Sender: FDA-Public Use
  Company Number: ES-MERCK-1304ESP006682

PATIENT
  Age: 32 Year
  Sex: Male

DRUGS (2)
  1. REBETOL [Suspect]
     Dosage: 6 DF, QD
     Route: 048
     Dates: start: 20111121
  2. PEGASYS [Suspect]
     Dosage: 180 MICROGRAM, QW
     Route: 058
     Dates: start: 20111121

REACTIONS (1)
  - Pancytopenia [Unknown]
